FAERS Safety Report 14712753 (Version 8)
Quarter: 2020Q1

REPORT INFORMATION
  Report Type: Report from Study
  Country: IT (occurrence: IT)
  Receive Date: 20180404
  Receipt Date: 20200218
  Transmission Date: 20200409
  Serious: Yes (Other)
  Sender: FDA-Public Use
  Company Number: IT-ROCHE-2094496

PATIENT
  Age: 47 Year
  Sex: Female
  Weight: 58 kg

DRUGS (55)
  1. ATEZOLIZUMAB. [Suspect]
     Active Substance: ATEZOLIZUMAB
     Indication: MARGINAL ZONE LYMPHOMA
     Dosage: DATE OF MOST RECENT DOSE OF ATEZOLIZUMAB PRIOR TO ADVERSE EVENT: 16/MAR/2018
     Route: 042
     Dates: start: 20180216
  2. GLICLAZIDE [Concomitant]
     Active Substance: GLICLAZIDE
  3. MEPRAL [OMEPRAZOLE] [Concomitant]
     Indication: PROPHYLAXIS
     Route: 065
     Dates: start: 20180211, end: 20180219
  4. PERFALGAN [Concomitant]
     Active Substance: ACETAMINOPHEN
     Route: 065
     Dates: start: 20190308, end: 20190308
  5. FLEBOCORTID [Concomitant]
     Active Substance: HYDROCORTISONE SODIUM SUCCINATE
     Route: 065
     Dates: start: 20180216, end: 20180216
  6. DIFLUCAN [Concomitant]
     Active Substance: FLUCONAZOLE
     Indication: PROPHYLAXIS
     Dosage: FOR 5 DAYS EACH CYCLE
     Route: 065
     Dates: start: 20180309, end: 20180327
  7. CLENIL [BECLOMETASONE DIPROPIONATE] [Concomitant]
     Indication: COUGH
     Route: 065
     Dates: start: 20190104, end: 20190110
  8. TAZOCIN [Concomitant]
     Active Substance: PIPERACILLIN SODIUM\TAZOBACTAM SODIUM
     Route: 065
     Dates: start: 20190311, end: 20190318
  9. ANTRA [OMEPRAZOLE] [Concomitant]
     Active Substance: OMEPRAZOLE
     Route: 065
     Dates: start: 20180223, end: 20180301
  10. LEVOXACIN [Concomitant]
     Active Substance: LEVOFLOXACIN
     Indication: PROPHYLAXIS
     Dosage: FOR 5 DAYS EACH CYCLE
     Route: 065
     Dates: start: 20180309, end: 20180327
  11. RANITIDINE. [Concomitant]
     Active Substance: RANITIDINE
     Route: 065
     Dates: start: 20180316
  12. LYRICA [Concomitant]
     Active Substance: PREGABALIN
     Indication: NEUROPATHY PERIPHERAL
     Route: 065
     Dates: start: 20180608
  13. METFORMIN [Concomitant]
     Active Substance: METFORMIN HYDROCHLORIDE
     Route: 065
  14. NOBISTAR [Concomitant]
     Active Substance: NEBIVOLOL HYDROCHLORIDE
  15. ANTRA [OMEPRAZOLE] [Concomitant]
     Active Substance: OMEPRAZOLE
     Route: 065
     Dates: start: 20180220, end: 20180222
  16. PERFALGAN [Concomitant]
     Active Substance: ACETAMINOPHEN
     Route: 065
     Dates: start: 20181123, end: 20181123
  17. RITUXIMAB. [Suspect]
     Active Substance: RITUXIMAB
     Indication: MARGINAL ZONE LYMPHOMA
     Dosage: DATE OF MOST RECENT DOSE OF RITUXIMAB PRIOR TO ADVERSE EVENT: 16/FEB/2018
     Route: 042
     Dates: start: 20180216
  18. BACTRIM [Concomitant]
     Active Substance: SULFAMETHOXAZOLE\TRIMETHOPRIM
     Dosage: BID FOR 2 DAYS WEEKLY
     Route: 065
     Dates: start: 20180309
  19. DEURSIL [Concomitant]
     Active Substance: URSODIOL
     Indication: PROPHYLAXIS
     Route: 065
     Dates: start: 20180205
  20. URBASON [METHYLPREDNISOLONE] [Concomitant]
     Active Substance: METHYLPREDNISOLONE
     Route: 065
     Dates: start: 20180215, end: 20180216
  21. FASTURTEC [Concomitant]
     Active Substance: RASBURICASE
     Indication: PROPHYLAXIS
     Route: 065
     Dates: start: 20180215, end: 20180215
  22. ACICLOVIR [Concomitant]
     Active Substance: ACYCLOVIR
     Indication: PROPHYLAXIS
     Route: 065
     Dates: start: 20180215, end: 20180301
  23. ZYLORIC [Concomitant]
     Active Substance: ALLOPURINOL
     Indication: PROPHYLAXIS
     Route: 065
     Dates: start: 20180309
  24. TRANQUIRIT [Concomitant]
     Active Substance: DIAZEPAM
     Route: 065
     Dates: start: 20190104
  25. QUARK [Concomitant]
     Active Substance: RAMIPRIL
  26. FASTURTEC [Concomitant]
     Active Substance: RASBURICASE
     Route: 065
     Dates: start: 20180216, end: 20180219
  27. DELTACORTENE [Concomitant]
     Active Substance: PREDNISONE
     Indication: BONE PAIN
     Route: 065
     Dates: start: 20180302, end: 20180319
  28. DEBRIDAT [TRIMEBUTINE] [Concomitant]
     Active Substance: TRIMEBUTINE
     Route: 065
     Dates: start: 20180302, end: 20180308
  29. MYCOSTATIN [Concomitant]
     Active Substance: NYSTATIN
     Indication: PROPHYLAXIS
     Route: 065
     Dates: start: 20180309
  30. TRIMETON [Concomitant]
     Active Substance: CHLORPHENIRAMINE MALEATE
     Route: 065
     Dates: start: 20180216
  31. TARGOSID [Concomitant]
     Active Substance: TEICOPLANIN
     Route: 065
     Dates: start: 20190315, end: 20190320
  32. CARDICOR [Concomitant]
     Active Substance: BISOPROLOL
     Route: 065
     Dates: start: 20190311
  33. FILGRASTIM [Concomitant]
     Active Substance: FILGRASTIM
     Indication: NEUTROPENIA
     Route: 065
     Dates: start: 20180309, end: 20180313
  34. BACTRIM [Concomitant]
     Active Substance: SULFAMETHOXAZOLE\TRIMETHOPRIM
     Indication: PROPHYLAXIS
     Route: 065
     Dates: start: 20180215, end: 20180301
  35. ACICLIN [Concomitant]
     Active Substance: ACYCLOVIR
     Indication: PROPHYLAXIS
     Route: 065
     Dates: start: 20180309
  36. FLEBOCORTID [Concomitant]
     Active Substance: HYDROCORTISONE SODIUM SUCCINATE
     Route: 065
     Dates: start: 20180316
  37. ROCEFIN [Concomitant]
     Active Substance: CEFTRIAXONE SODIUM
     Indication: PYREXIA
     Route: 042
     Dates: start: 20181123, end: 20181123
  38. ACICLOVIR [Concomitant]
     Active Substance: ACYCLOVIR
     Route: 065
     Dates: start: 20190318, end: 20190327
  39. AMBISOME [Concomitant]
     Active Substance: AMPHOTERICIN B
     Route: 065
     Dates: start: 20190320, end: 20190327
  40. RITUXIMAB. [Suspect]
     Active Substance: RITUXIMAB
     Indication: MARGINAL ZONE LYMPHOMA
     Dosage: DATE OF MOST RECENT DOSE OF RITUXIMAB PRIOR TO ADVERSE EVENT: 16/MAR/2018
     Route: 058
     Dates: start: 20180316
  41. ANTRA [OMEPRAZOLE] [Concomitant]
     Active Substance: OMEPRAZOLE
     Indication: PROPHYLAXIS
     Route: 065
     Dates: start: 20180205, end: 20180211
  42. URBASON [METHYLPREDNISOLONE] [Concomitant]
     Active Substance: METHYLPREDNISOLONE
     Indication: PROPHYLAXIS
     Route: 065
     Dates: start: 20180211, end: 20180214
  43. PERFALGAN [Concomitant]
     Active Substance: ACETAMINOPHEN
     Indication: PYREXIA
     Route: 065
     Dates: start: 20180216, end: 20180216
  44. ROCEFIN [Concomitant]
     Active Substance: CEFTRIAXONE SODIUM
     Route: 065
     Dates: start: 20190308, end: 20190308
  45. BREVA [Concomitant]
     Active Substance: ALBUTEROL\IPRATROPIUM
     Indication: COUGH
     Route: 065
     Dates: start: 20190104, end: 20190110
  46. MERREM [Concomitant]
     Active Substance: MEROPENEM
     Route: 065
     Dates: start: 20190318, end: 20190327
  47. DIFLUCAN [Concomitant]
     Active Substance: FLUCONAZOLE
     Route: 065
     Dates: start: 20190318, end: 20190319
  48. ANTRA [OMEPRAZOLE] [Concomitant]
     Active Substance: OMEPRAZOLE
     Route: 065
     Dates: start: 20180302
  49. LAEVOLAC [Concomitant]
     Active Substance: LACTULOSE
     Indication: PROPHYLAXIS
     Route: 065
     Dates: start: 20180206, end: 20180219
  50. MEPRAL [OMEPRAZOLE] [Concomitant]
     Route: 065
     Dates: start: 20190311, end: 20190327
  51. PERFALGAN [Concomitant]
     Active Substance: ACETAMINOPHEN
     Route: 065
     Dates: start: 20180316
  52. TRIMETON [Concomitant]
     Active Substance: CHLORPHENIRAMINE MALEATE
     Route: 065
     Dates: start: 20180216, end: 20180216
  53. TRIMETON [Concomitant]
     Active Substance: CHLORPHENIRAMINE MALEATE
     Route: 065
     Dates: start: 20180316
  54. FLEBOCORTID [Concomitant]
     Active Substance: HYDROCORTISONE SODIUM SUCCINATE
     Route: 065
     Dates: start: 20180316
  55. ACICLIN [Concomitant]
     Active Substance: ACYCLOVIR
     Route: 065
     Dates: start: 20180302

REACTIONS (1)
  - Systemic inflammatory response syndrome [Not Recovered/Not Resolved]

NARRATIVE: CASE EVENT DATE: 20180320
